FAERS Safety Report 4630886-7 (Version None)
Quarter: 2005Q2

REPORT INFORMATION
  Report Type: 
  Country: None (occurrence: None)
  Receive Date: 20050404
  Receipt Date: 20050404
  Transmission Date: 20051028
  Serious: Yes (Hospitalization)
  Sender: FDA-Public Use
  Company Number: None

PATIENT
  Age: 47 Year
  Sex: Male
  Weight: 67.1324 kg

DRUGS (5)
  1. MYAMBUTOL [Suspect]
     Indication: TUBERCULOSIS
     Dosage: 1500 MG ONCE A DAY
     Dates: start: 20040401
  2. RIFABUTIN [Suspect]
     Dosage: 300 MG ONCE A DAY
  3. ISONIAZID [Suspect]
     Dosage: 300 MG ONCE A DAY
  4. PYRAZINAMIDE [Suspect]
     Dosage: 1500 MG ONCE A DAY
  5. SLIDING SCALE OF INSULIN [Concomitant]

REACTIONS (5)
  - BLOOD GLUCOSE INCREASED [None]
  - DISEASE RECURRENCE [None]
  - HEPATITIS [None]
  - RENAL FAILURE [None]
  - TUBERCULOSIS [None]
